FAERS Safety Report 8294629 (Version 2)
Quarter: 2013Q1

REPORT INFORMATION
  Report Type: Spontaneous
  Country: FR (occurrence: FR)
  Receive Date: 20111216
  Receipt Date: 20130215
  Transmission Date: 20140127
  Serious: Yes (Other)
  Sender: FDA-Public Use
  Company Number: PHHY2010FR092816

PATIENT
  Sex: Female

DRUGS (1)
  1. COARTEM [Suspect]
     Indication: MALARIA
     Dosage: FIXED-DOSE COMBINATION OF 20 MG AND 120 MG) GIVEN ORALLY UNDER SUPERVISION AS FOUR TABLETS AT 0 H, 8
     Route: 048

REACTIONS (2)
  - Lymphopenia [Recovered/Resolved]
  - Maternal exposure during pregnancy [Unknown]
